FAERS Safety Report 7551783-3 (Version None)
Quarter: 2011Q2

REPORT INFORMATION
  Report Type: 
  Country: None (occurrence: None)
  Receive Date: 20110616
  Receipt Date: 20110606
  Transmission Date: 20111010
  Serious: Yes (Hospitalization)
  Sender: FDA-Public Use
  Company Number: B0725354A

PATIENT
  Age: 8 Year
  Sex: Female

DRUGS (6)
  1. ALVESCO [Concomitant]
     Route: 055
     Dates: start: 20090301
  2. ONON [Concomitant]
     Route: 048
     Dates: start: 20031101
  3. MEPTIN [Concomitant]
     Route: 055
  4. BETAMETHASONE [Concomitant]
     Route: 048
  5. FLUTICASONE PROPIONATE [Suspect]
     Dosage: 200MCG PER DAY
     Route: 055
     Dates: start: 20031101
  6. INTAL [Concomitant]
     Route: 055

REACTIONS (5)
  - ASTHMA [None]
  - LARYNGITIS [None]
  - OROPHARYNGEAL PAIN [None]
  - DYSPHONIA [None]
  - THROAT IRRITATION [None]
